FAERS Safety Report 21751280 (Version 21)
Quarter: 2025Q2

REPORT INFORMATION
  Report Type: Spontaneous
  Country: US (occurrence: US)
  Receive Date: 20221220
  Receipt Date: 20250606
  Transmission Date: 20250716
  Serious: Yes (Hospitalization, Other)
  Sender: UNITED THERAPEUTICS
  Company Number: US-UNITED THERAPEUTICS-UNT-2022-030560

PATIENT
  Sex: Female
  Weight: 66.213 kg

DRUGS (32)
  1. REMODULIN [Suspect]
     Active Substance: TREPROSTINIL
     Indication: Pulmonary arterial hypertension
  2. REMODULIN [Suspect]
     Active Substance: TREPROSTINIL
  3. REMODULIN [Suspect]
     Active Substance: TREPROSTINIL
  4. REMODULIN [Suspect]
     Active Substance: TREPROSTINIL
     Indication: Pulmonary arterial hypertension
  5. REMODULIN [Suspect]
     Active Substance: TREPROSTINIL
  6. REMODULIN [Suspect]
     Active Substance: TREPROSTINIL
  7. REMODULIN [Suspect]
     Active Substance: TREPROSTINIL
  8. REMODULIN [Suspect]
     Active Substance: TREPROSTINIL
  9. REMODULIN [Suspect]
     Active Substance: TREPROSTINIL
  10. REMODULIN [Suspect]
     Active Substance: TREPROSTINIL
  11. REMODULIN [Suspect]
     Active Substance: TREPROSTINIL
  12. LIDOCAINE HYDROCHLORIDE [Suspect]
     Active Substance: LIDOCAINE HYDROCHLORIDE
     Indication: Pain
  13. OPSUMIT [Concomitant]
     Active Substance: MACITENTAN
     Indication: Product used for unknown indication
  14. AMITRIPTYLINE HYDROCHLORIDE [Concomitant]
     Active Substance: AMITRIPTYLINE HYDROCHLORIDE
     Indication: Product used for unknown indication
  15. ACETAZOLAMIDE [Concomitant]
     Active Substance: ACETAZOLAMIDE
     Indication: Product used for unknown indication
  16. BUPROPION HYDROCHLORIDE [Concomitant]
     Active Substance: BUPROPION HYDROCHLORIDE
     Indication: Product used for unknown indication
  17. TADALAFIL [Concomitant]
     Active Substance: TADALAFIL
     Indication: Product used for unknown indication
  18. IBUPROFEN [Concomitant]
     Active Substance: IBUPROFEN
     Indication: Product used for unknown indication
  19. LECITHIN [Concomitant]
     Active Substance: LECITHIN
     Indication: Product used for unknown indication
  20. LYRICA [Concomitant]
     Active Substance: PREGABALIN
     Indication: Product used for unknown indication
  21. METHOCARBAMOL [Concomitant]
     Active Substance: METHOCARBAMOL
     Indication: Product used for unknown indication
  22. KETAMINE HYDROCHLORIDE [Concomitant]
     Active Substance: KETAMINE HYDROCHLORIDE
     Indication: Product used for unknown indication
  23. CELEBREX [Concomitant]
     Active Substance: CELECOXIB
     Indication: Product used for unknown indication
  24. GABAPENTIN [Concomitant]
     Active Substance: GABAPENTIN
     Indication: Product used for unknown indication
  25. PROMETHAZINE HYDROCHLORIDE [Concomitant]
     Active Substance: PROMETHAZINE HYDROCHLORIDE
     Indication: Product used for unknown indication
  26. LEVETIRACETAM [Concomitant]
     Active Substance: LEVETIRACETAM
     Indication: Product used for unknown indication
  27. POLOXAMER [Concomitant]
     Active Substance: POLOXAMER
     Indication: Product used for unknown indication
  28. ACETAMINOPHEN [Concomitant]
     Active Substance: ACETAMINOPHEN
     Indication: Product used for unknown indication
  29. CLONIDINE [Concomitant]
     Active Substance: CLONIDINE
     Indication: Product used for unknown indication
  30. HYDROCHLOROTHIAZIDE [Concomitant]
     Active Substance: HYDROCHLOROTHIAZIDE
     Indication: Product used for unknown indication
  31. KETOPROFEN [Concomitant]
     Active Substance: KETOPROFEN
     Indication: Product used for unknown indication
  32. PROZAC [Concomitant]
     Active Substance: FLUOXETINE HYDROCHLORIDE
     Indication: Product used for unknown indication

REACTIONS (46)
  - Cerebral haemorrhage [Recovered/Resolved]
  - Cancer pain [Not Recovered/Not Resolved]
  - Intracranial aneurysm [Recovered/Resolved]
  - Fall [Recovered/Resolved with Sequelae]
  - Nausea [Not Recovered/Not Resolved]
  - Headache [Not Recovered/Not Resolved]
  - Infusion site pain [Recovered/Resolved]
  - Infusion site erythema [Recovered/Resolved]
  - Infusion site swelling [Recovered/Resolved]
  - Infusion site irritation [Recovered/Resolved]
  - Device dislocation [Unknown]
  - Device alarm issue [Not Recovered/Not Resolved]
  - Device leakage [Unknown]
  - Device alarm issue [Recovered/Resolved]
  - Device alarm issue [Unknown]
  - Infusion site rash [Recovered/Resolved]
  - Infusion site pruritus [Recovered/Resolved]
  - Device infusion issue [Unknown]
  - Device use issue [Unknown]
  - Infusion site inflammation [Recovered/Resolved]
  - Incoherent [Recovered/Resolved]
  - Sleep disorder [Recovered/Resolved]
  - Pyrexia [Recovered/Resolved]
  - Drug ineffective [Unknown]
  - Infusion site warmth [Recovered/Resolved]
  - Peripheral swelling [Recovered/Resolved]
  - Dyspnoea [Recovered/Resolved]
  - Stress [Recovered/Resolved]
  - Visual impairment [Recovered/Resolved]
  - Feeling abnormal [Recovered/Resolved]
  - Dizziness [Recovered/Resolved]
  - Fatigue [Not Recovered/Not Resolved]
  - Device information output issue [Unknown]
  - Feeling hot [Not Recovered/Not Resolved]
  - Infusion site cellulitis [Recovered/Resolved]
  - Device use error [Recovered/Resolved]
  - Device leakage [Unknown]
  - Device alarm issue [Recovered/Resolved]
  - Device wireless communication issue [Unknown]
  - Device maintenance issue [Unknown]
  - Skin irritation [Recovered/Resolved]
  - Sensitive skin [Not Recovered/Not Resolved]
  - Drug tolerance decreased [Unknown]
  - Device alarm issue [Unknown]
  - Device issue [Unknown]
  - Device alarm issue [Unknown]

NARRATIVE: CASE EVENT DATE: 20220101
